FAERS Safety Report 25159547 (Version 1)
Quarter: 2025Q2

REPORT INFORMATION
  Report Type: Spontaneous
  Country: US (occurrence: US)
  Receive Date: 20250404
  Receipt Date: 20250404
  Transmission Date: 20250716
  Serious: Yes (Hospitalization, Other)
  Sender: BRISTOL MYERS SQUIBB
  Company Number: US-BRISTOL-MYERS SQUIBB COMPANY-2025-044109

PATIENT
  Age: 70 Year
  Sex: Female
  Weight: 85.28 kg

DRUGS (2)
  1. REVLIMID [Suspect]
     Active Substance: LENALIDOMIDE
     Indication: Urethral cancer
     Dosage: DAILY FOR 21 DAYS ON THEN 7 DAYS OFF
     Route: 048
  2. REVLIMID [Suspect]
     Active Substance: LENALIDOMIDE
     Indication: Plasma cell myeloma

REACTIONS (3)
  - Nausea [Recovering/Resolving]
  - Diarrhoea [Recovering/Resolving]
  - Clostridium difficile infection [Unknown]

NARRATIVE: CASE EVENT DATE: 20250322
